FAERS Safety Report 17817281 (Version 1)
Quarter: 2020Q2

REPORT INFORMATION
  Report Type: Spontaneous
  Country: PR (occurrence: US)
  Receive Date: 20200522
  Receipt Date: 20200522
  Transmission Date: 20200714
  Serious: No
  Sender: FDA-Public Use
  Company Number: PR-GUERBET-PR-20200005

PATIENT
  Age: 81 Year
  Sex: Female
  Weight: 65.7 kg

DRUGS (1)
  1. OPTIRAY [Suspect]
     Active Substance: IOVERSOL
     Indication: COMPUTERISED TOMOGRAM
     Route: 042
     Dates: start: 20200311, end: 20200311

REACTIONS (3)
  - Asthenia [Recovered/Resolved]
  - Lip pruritus [Recovered/Resolved]
  - Erythema [Recovered/Resolved]

NARRATIVE: CASE EVENT DATE: 20200311
